FAERS Safety Report 5342372-X (Version None)
Quarter: 2007Q2

REPORT INFORMATION
  Report Type: 
  Country: None (occurrence: None)
  Receive Date: 20070601
  Receipt Date: 20070521
  Transmission Date: 20071010
  Serious: Yes (Death, Hospitalization, Other)
  Sender: FDA-Public Use
  Company Number: US-PFIZER INC-2006133919

PATIENT
  Sex: Female
  Weight: 59 kg

DRUGS (3)
  1. BEXTRA [Suspect]
     Indication: ARTHRITIS
     Route: 048
     Dates: start: 20040201, end: 20040908
  2. VIOXX [Suspect]
     Indication: PAIN
     Route: 048
     Dates: start: 20001205, end: 20040701
  3. VIOXX [Suspect]
     Indication: RHEUMATOID ARTHRITIS

REACTIONS (2)
  - DEMENTIA ALZHEIMER'S TYPE [None]
  - ISCHAEMIC STROKE [None]
